FAERS Safety Report 5232443-0 (Version None)
Quarter: 2007Q1

REPORT INFORMATION
  Report Type: 
  Country: None (occurrence: None)
  Receive Date: 20070207
  Receipt Date: 20070131
  Transmission Date: 20070707
  Serious: Yes (Life-Threatening, Other)
  Sender: FDA-Public Use
  Company Number: HQWYE431723OCT06

PATIENT
  Sex: Male
  Weight: 54 kg

DRUGS (7)
  1. MYLOTARG [Suspect]
     Indication: ACUTE MYELOID LEUKAEMIA
     Route: 041
     Dates: start: 20060710, end: 20060710
  2. MYLOTARG [Suspect]
     Route: 041
     Dates: start: 20060724, end: 20060724
  3. AMIKACIN SULFATE [Concomitant]
     Indication: PROPHYLAXIS
     Route: 041
     Dates: start: 20060716, end: 20060728
  4. DIFLUCAN [Concomitant]
     Indication: PROPHYLAXIS
     Route: 048
     Dates: start: 20050710
  5. TIENAM [Concomitant]
     Indication: PROPHYLAXIS
     Route: 041
     Dates: start: 20060716, end: 20060728
  6. FIRSTCIN [Concomitant]
     Indication: PROPHYLAXIS
     Route: 041
     Dates: start: 20060710, end: 20060715
  7. FUTHAN [Concomitant]
     Indication: PROPHYLAXIS
     Route: 041
     Dates: start: 20060710, end: 20060717

REACTIONS (3)
  - HYPOKALAEMIA [None]
  - NEUTROPENIA [None]
  - PNEUMONIA [None]
